FAERS Safety Report 8917763 (Version 2)
Quarter: 2013Q3

REPORT INFORMATION
  Report Type: Spontaneous
  Country: US (occurrence: US)
  Receive Date: 20121120
  Receipt Date: 20130725
  Transmission Date: 20140515
  Serious: Yes (Other)
  Sender: FDA-Public Use
  Company Number: US-TARO-2012P1064771

PATIENT
  Age: 52 Year
  Sex: Male

DRUGS (8)
  1. FLUCONAZOLE [Suspect]
     Indication: OROPHARYNGEAL CANDIDIASIS
     Route: 048
  2. RITONAVIR [Suspect]
     Indication: HIV INFECTION
  3. FLUTICASONE PROPIONATE OINTMENT 0.005% [Suspect]
     Indication: BRONCHITIS CHRONIC
  4. FLUTICASONE PROPIONATE OINTMENT 0.005% [Suspect]
     Indication: BRONCHITIS CHRONIC
  5. FLUTICASONE 0.05% [Suspect]
     Indication: NASAL CONGESTION
     Route: 045
  6. ATAZANAVIR [Concomitant]
  7. EFAVIRENZ [Concomitant]
  8. DILTIAZEM [Concomitant]

REACTIONS (4)
  - Cushing^s syndrome [Unknown]
  - Secondary adrenocortical insufficiency [Unknown]
  - Drug interaction [Recovered/Resolved]
  - Condition aggravated [Recovered/Resolved]
